FAERS Safety Report 15937838 (Version 2)
Quarter: 2019Q1

REPORT INFORMATION
  Report Type: Spontaneous
  Country: FR (occurrence: FR)
  Receive Date: 20190208
  Receipt Date: 20190219
  Transmission Date: 20190417
  Serious: Yes (Hospitalization, Other)
  Sender: FDA-Public Use
  Company Number: FR-ELI_LILLY_AND_COMPANY-FR201902000427

PATIENT
  Age: 43 Year
  Sex: Female

DRUGS (4)
  1. TRULICITY [Suspect]
     Active Substance: DULAGLUTIDE
     Dosage: 1.5 MG, WEEKLY (1/W)
     Route: 065
  2. TRULICITY [Suspect]
     Active Substance: DULAGLUTIDE
     Indication: TYPE 2 DIABETES MELLITUS
     Dosage: 1.5 MG, WEEKLY (1/W)
     Route: 065
     Dates: start: 20180626
  3. FLURBIPROFEN. [Suspect]
     Active Substance: FLURBIPROFEN
     Indication: FIBROMYALGIA
     Dosage: UNK, UNKNOWN
     Route: 065
  4. METFORMIN [Concomitant]
     Active Substance: METFORMIN HYDROCHLORIDE
     Indication: TYPE 2 DIABETES MELLITUS
     Dosage: 500 MG, TID

REACTIONS (19)
  - Influenza [Unknown]
  - Nausea [Unknown]
  - Product dose omission [Unknown]
  - Lung disorder [Unknown]
  - Diarrhoea [Unknown]
  - Hyperuricaemia [Unknown]
  - Blood glucose increased [Unknown]
  - Seizure [Recovering/Resolving]
  - Decreased appetite [Unknown]
  - Hypertension [Unknown]
  - Drug ineffective [Unknown]
  - Asthma [Unknown]
  - Weight increased [Unknown]
  - Gastroenteritis viral [Unknown]
  - Blood glucose abnormal [Unknown]
  - Pain [Unknown]
  - Mobility decreased [Unknown]
  - Sciatica [Unknown]
  - Vomiting [Unknown]

NARRATIVE: CASE EVENT DATE: 2018
